FAERS Safety Report 6619456-9 (Version None)
Quarter: 2010Q1

REPORT INFORMATION
  Report Type: 
  Country: None (occurrence: None)
  Receive Date: 20100303
  Receipt Date: 20100216
  Transmission Date: 20100710
  Serious: Yes (Death)
  Sender: FDA-Public Use
  Company Number: 2010020100

PATIENT
  Age: 38 Year
  Sex: Female

DRUGS (3)
  1. CARISOPRODOL [Suspect]
     Dosage: ORAL
     Route: 048
  2. OXYCODONE AND ACETAMINOPHEN [Suspect]
     Dosage: ORAL
  3. ALPRAZOLAM [Suspect]
     Dosage: ORAL

REACTIONS (1)
  - DRUG ABUSE [None]
